FAERS Safety Report 20665563 (Version 3)
Quarter: 2023Q1

REPORT INFORMATION
  Report Type: Report from Study
  Country: EG (occurrence: EG)
  Receive Date: 20220402
  Receipt Date: 20230327
  Transmission Date: 20230418
  Serious: Yes (Other)
  Sender: FDA-Public Use
  Company Number: EG-NOVARTISPH-NVSC2022EG073197

PATIENT
  Age: 29 Year
  Sex: Female

DRUGS (6)
  1. GILENYA [Suspect]
     Active Substance: FINGOLIMOD HYDROCHLORIDE
     Indication: Multiple sclerosis
     Dosage: 0.5 MG, QD
     Route: 048
     Dates: start: 201911
  2. GILENYA [Suspect]
     Active Substance: FINGOLIMOD HYDROCHLORIDE
     Dosage: 0.5 MG, QD
     Route: 048
     Dates: start: 201912
  3. ACETAMINOPHEN [Concomitant]
     Active Substance: ACETAMINOPHEN
     Indication: Migraine
     Dosage: UNK (STARTED 8 OR 9 YEARS AGO) (ONCE OR TWICE PER DAY)
     Route: 065
  4. VITAMIN E [Concomitant]
     Active Substance: .ALPHA.-TOCOPHEROL
     Indication: Vitamin supplementation
     Dosage: (STRENGTH: 400) QD (STARTED: 1 YEAR AGO, SHE WAS TAKING IT IN IRREGULAR MANNER)
     Route: 065
  5. VITAMIN D NOS [Concomitant]
     Active Substance: VITAMIN D NOS
     Indication: Vitamin supplementation
     Dosage: (STRENGTH: 10,000) QD (STARTED: 1 YEAR AGO, SHE WAS TAKING IT IN IRREGULAR MANNER)
     Route: 048
  6. DIMRA [Concomitant]
     Indication: Product used for unknown indication
     Dosage: UNK (STARTED 2 OR 3 YEARS AGO) QD WHEN NEEDED
     Route: 065

REACTIONS (11)
  - Lymphocyte count increased [Unknown]
  - Multiple sclerosis relapse [Recovered/Resolved]
  - Balance disorder [Recovered/Resolved]
  - Movement disorder [Recovered/Resolved]
  - Ocular discomfort [Recovered/Resolved]
  - Hypoaesthesia [Recovered/Resolved]
  - Limb discomfort [Recovered/Resolved]
  - Dizziness [Recovered/Resolved]
  - Mental fatigue [Not Recovered/Not Resolved]
  - Herpes virus infection [Recovering/Resolving]
  - Headache [Not Recovered/Not Resolved]

NARRATIVE: CASE EVENT DATE: 20220201
